FAERS Safety Report 7569840-4 (Version None)
Quarter: 2011Q2

REPORT INFORMATION
  Report Type: 
  Country: None (occurrence: None)
  Receive Date: 20110620
  Receipt Date: 20110607
  Transmission Date: 20111010
  Serious: Yes (Death)
  Sender: FDA-Public Use
  Company Number: UTC-006149

PATIENT
  Age: 44 Year
  Sex: Female

DRUGS (2)
  1. REVATIO [Concomitant]
  2. REMODULIN [Suspect]
     Dosage: 17.28 UG/KG (0.012 UG/KG,1 IN 1 MIN),SUBCUTANEOUS
     Route: 058
     Dates: start: 20100401

REACTIONS (2)
  - HYPOXIA [None]
  - RESPIRATORY FAILURE [None]
